FAERS Safety Report 4567145-7 (Version None)
Quarter: 2005Q1

REPORT INFORMATION
  Report Type: 
  Country: None (occurrence: None)
  Receive Date: 20050127
  Receipt Date: 20050118
  Transmission Date: 20050727
  Serious: Yes (Other)
  Sender: FDA-Public Use
  Company Number: 2004-0007679

PATIENT
  Age: 37 Year
  Sex: Female

DRUGS (1)
  1. HEPSERA [Suspect]
     Indication: HEPATITIS B
     Dosage: 10 MG ONCE A DAY, ORAL
     Route: 048
     Dates: start: 20040109

REACTIONS (7)
  - ANAEMIA [None]
  - COMPLICATIONS OF MATERNAL EXPOSURE TO THERAPEUTIC DRUGS [None]
  - HBV DNA INCREASED [None]
  - POSTPARTUM HAEMORRHAGE [None]
  - PREGNANCY [None]
  - VAGINAL HAEMORRHAGE [None]
  - VAGINAL LACERATION [None]
